FAERS Safety Report 24948755 (Version 1)
Quarter: 2025Q1

REPORT INFORMATION
  Report Type: Spontaneous
  Country: US (occurrence: US)
  Receive Date: 20250210
  Receipt Date: 20250210
  Transmission Date: 20250409
  Serious: No
  Sender: AMGEN
  Company Number: US-AMGEN-USASP2025024398

PATIENT
  Age: 31 Year
  Sex: Female

DRUGS (5)
  1. OTEZLA [Suspect]
     Active Substance: APREMILAST
     Indication: Psoriasis
     Dosage: 30 MILLIGRAM, BID
     Route: 048
     Dates: start: 20250107, end: 20250204
  2. ALEVE [Concomitant]
     Active Substance: NAPROXEN SODIUM
  3. LEVONORGESTREL [Concomitant]
     Active Substance: LEVONORGESTREL
  4. VITAMINS [Concomitant]
     Active Substance: VITAMINS
  5. CLOBETASOL [Concomitant]
     Active Substance: CLOBETASOL

REACTIONS (1)
  - Depression [Recovered/Resolved]

NARRATIVE: CASE EVENT DATE: 20250101
